FAERS Safety Report 4851311-7 (Version None)
Quarter: 2005Q4

REPORT INFORMATION
  Report Type: 
  Country: None (occurrence: None)
  Receive Date: 20051209
  Receipt Date: 20051206
  Transmission Date: 20060501
  Serious: Yes (Life-Threatening)
  Sender: FDA-Public Use
  Company Number: 1314819-2005-00015

PATIENT
  Sex: Male

DRUGS (1)
  1. DUAC [Suspect]
     Indication: ACNE
     Dosage: QD/060

REACTIONS (1)
  - ANAPHYLACTIC REACTION [None]
